FAERS Safety Report 16556209 (Version 1)
Quarter: 2019Q3

REPORT INFORMATION
  Report Type: Spontaneous
  Country: DE (occurrence: DE)
  Receive Date: 20190710
  Receipt Date: 20190710
  Transmission Date: 20191004
  Serious: Yes (Death, Hospitalization, Other)
  Sender: FDA-Public Use
  Company Number: DE-PFIZER INC-2019291542

PATIENT
  Sex: Female

DRUGS (36)
  1. FILGRASTIM [Suspect]
     Active Substance: FILGRASTIM
     Dosage: 30 MILLION IU, 1X/DAY UNIT=NOT AVAILABLE
     Route: 058
     Dates: start: 20161031, end: 20161107
  2. MACROGOL [Concomitant]
     Active Substance: POLYETHYLENE GLYCOLS
     Indication: CONSTIPATION
     Dosage: UNK, QD 1 POUCH FOR 3 DAYS
     Dates: start: 20161114, end: 20161116
  3. AMPHOTERICIN B. [Concomitant]
     Active Substance: AMPHOTERICIN B
     Dosage: UNK 1 PIPETTE
     Route: 048
     Dates: start: 20161017
  4. LENOGRASTIM [Suspect]
     Active Substance: LENOGRASTIM
     Indication: B-CELL LYMPHOMA
     Dosage: 34 MIO IE (ONCE)
     Route: 058
     Dates: start: 20161019
  5. ZOPICLONE [Concomitant]
     Active Substance: ZOPICLONE
     Indication: INSOMNIA
     Dosage: 7.5 MILLIGRAM, QD
     Dates: start: 20161107
  6. COLECALCIFEROL [Concomitant]
     Active Substance: CHOLECALCIFEROL
     Indication: VITAMIN SUPPLEMENTATION
     Dosage: 20000 INTERNATIONAL UNIT, QWK
     Route: 048
     Dates: start: 20161027
  7. ALLOPURINOL. [Concomitant]
     Active Substance: ALLOPURINOL
     Indication: PROPHYLAXIS
     Dosage: 300 MILLIGRAM, QD
     Route: 048
     Dates: start: 20161114
  8. ALLEVYN [Concomitant]
     Dosage: UNK, QD (DERMAL)
     Route: 062
     Dates: start: 20161115
  9. FILGRASTIM [Suspect]
     Active Substance: FILGRASTIM
     Indication: B-CELL LYMPHOMA
     Dosage: 30 MILLION IU, 1X/DAY
     Route: 058
     Dates: start: 20161127
  10. ZOPICLONE [Concomitant]
     Active Substance: ZOPICLONE
     Indication: SLEEP DISORDER
  11. METOCLOPRAMIDE. [Concomitant]
     Active Substance: METOCLOPRAMIDE
     Indication: NAUSEA
     Dosage: 10 MILLIGRAM, TID
     Route: 048
  12. ACICLOVIR [Concomitant]
     Active Substance: ACYCLOVIR
     Indication: INFECTION PROPHYLAXIS
     Dosage: 400 MILLIGRAM, BID
     Route: 048
     Dates: start: 20161027
  13. PEGFILGRASTIM [Suspect]
     Active Substance: PEGFILGRASTIM
     Indication: B-CELL LYMPHOMA
     Dosage: 6 MG, Q2WK UNIT=NOT AVAILABLE
     Route: 058
     Dates: start: 20161014
  14. DULOXETINE. [Concomitant]
     Active Substance: DULOXETINE
     Indication: DEPRESSION
     Dosage: 33.68 MILLIGRAM, TID
     Route: 048
     Dates: start: 20160901
  15. PIPERACILLIN. [Concomitant]
     Active Substance: PIPERACILLIN SODIUM
     Indication: OROPHARYNGEAL PAIN
     Dosage: 4 GRAM, TID
     Route: 042
     Dates: start: 20161019
  16. DOXORUBICIN [Suspect]
     Active Substance: DOXORUBICIN
     Indication: B-CELL LYMPHOMA
     Dosage: 76 MILLIGRAM, Q2WK
     Route: 042
     Dates: start: 20160927
  17. RITUXIMAB. [Suspect]
     Active Substance: RITUXIMAB
     Indication: B-CELL LYMPHOMA
     Dosage: 570 MILLIGRAM, Q2WK
     Route: 042
     Dates: start: 20160926
  18. ENOXAPARIN SODIUM. [Concomitant]
     Active Substance: ENOXAPARIN SODIUM
     Indication: THROMBOSIS PROPHYLAXIS
     Dosage: 5 MILLILITER, QD
     Route: 058
     Dates: start: 20160907, end: 20160929
  19. METOPROLOL SUCCINATE. [Concomitant]
     Active Substance: METOPROLOL SUCCINATE
     Indication: HYPERTENSION
     Dosage: 47.5 MILLIGRAM, BID
     Route: 048
     Dates: start: 20160901
  20. TORASEMID [Concomitant]
     Active Substance: TORSEMIDE
     Dosage: 20 MILLIGRAM, QD
     Route: 048
  21. MIRTAZAPINE. [Concomitant]
     Active Substance: MIRTAZAPINE
     Indication: DEPRESSION
     Dosage: 15 MILLIGRAM, QD
     Route: 048
     Dates: start: 20160901
  22. PEGFILGRASTIM [Suspect]
     Active Substance: PEGFILGRASTIM
     Dosage: 30 MIO IE/0,5ML, (1 IN 1 D) UNIT=NOT AVAILABLE
     Route: 058
     Dates: start: 20161127
  23. AMPICILLIN [Concomitant]
     Active Substance: AMPICILLIN
     Dosage: 750 MG, BID
     Route: 048
     Dates: start: 20160913
  24. TAZOBACTAM [Concomitant]
     Active Substance: TAZOBACTAM
     Indication: OROPHARYNGEAL PAIN
     Dosage: 500 MILLIGRAM, TID
     Route: 042
     Dates: start: 20161019
  25. POLYETHYLENE GLYCOL [Concomitant]
     Active Substance: POLYETHYLENE GLYCOLS
     Indication: CONSTIPATION
     Dosage: UNK, BID (1 POUCH)
     Route: 048
     Dates: start: 20161117
  26. DEXPANTHENOL. [Concomitant]
     Active Substance: DEXPANTHENOL
     Indication: SKIN ULCER
     Dosage: UNK UNK, AS NECESSARY (PRN ATLEAST BID)
     Route: 062
     Dates: start: 20161114
  27. PREDNISONE. [Suspect]
     Active Substance: PREDNISONE
     Indication: B-CELL LYMPHOMA
     Dosage: 100 MILLIGRAM, QD
     Route: 048
     Dates: start: 20160907
  28. SULFAMETHOXAZOLE AND TRIMETHOPRIM [Concomitant]
     Active Substance: SULFAMETHOXAZOLE\TRIMETHOPRIM
     Indication: INFECTION PROPHYLAXIS
     Dosage: 960 MILLIGRAM , 1-0-1, ONLY MONDAY+THURSDAY ( 2XW)
     Route: 048
     Dates: start: 20161027
  29. LEVOFLOXACIN. [Concomitant]
     Active Substance: LEVOFLOXACIN
     Dosage: 500 MILLIGRAM, QD FOR 3 DAYS
     Route: 048
     Dates: start: 20161017, end: 20161019
  30. RIVAROXABAN [Concomitant]
     Active Substance: RIVAROXABAN
     Indication: OEDEMA PERIPHERAL
     Dosage: 15 MILLIGRAM, QD
     Route: 048
     Dates: start: 20161012
  31. VINCRISTINE [Suspect]
     Active Substance: VINCRISTINE
     Indication: B-CELL LYMPHOMA
     Dosage: 3.04 MILLIGRAM, Q2WK
     Route: 042
     Dates: start: 20160927
  32. CYCLOPHOSPHAMIDE. [Suspect]
     Active Substance: CYCLOPHOSPHAMIDE
     Indication: B-CELL LYMPHOMA
     Dosage: 1140 MILLIGRAM, Q2WK
     Route: 042
     Dates: start: 20160927
  33. FUROSEMIDE. [Concomitant]
     Active Substance: FUROSEMIDE
     Indication: FLUID RETENTION
     Dosage: 2040 MILLIGRAM, AS NECESSARY (2040 MILLIGRAM, FOR 10 DAYS)
     Route: 042
     Dates: start: 20061116, end: 20161125
  34. PANTOPRAZOLE SODIUM. [Concomitant]
     Active Substance: PANTOPRAZOLE SODIUM
     Indication: PROPHYLAXIS AGAINST GASTROINTESTINAL ULCER
     Dosage: 40 MILLIGRAM, QD
     Dates: start: 20161107
  35. TORASEMID [Concomitant]
     Active Substance: TORSEMIDE
     Indication: CARDIAC FAILURE
     Dosage: 5 MILLIGRAM, BID
     Route: 048
     Dates: start: 20161012
  36. FOLIC ACID. [Concomitant]
     Active Substance: FOLIC ACID
     Indication: PROPHYLAXIS
     Dosage: 5 MILLIGRAM, 2 TIMES/WK
     Route: 048
     Dates: start: 20161027

REACTIONS (12)
  - Dysphagia [Not Recovered/Not Resolved]
  - Thrombocytopenia [Recovered/Resolved]
  - Dehydration [Recovered/Resolved]
  - Weight decreased [Not Recovered/Not Resolved]
  - Streptococcal infection [Recovered/Resolved]
  - Hypokalaemia [Recovered/Resolved]
  - Anaemia [Not Recovered/Not Resolved]
  - Constipation [Recovered/Resolved]
  - Lung infection [Fatal]
  - Fatigue [Not Recovered/Not Resolved]
  - Spinal fracture [Not Recovered/Not Resolved]
  - Leukopenia [Recovered/Resolved]

NARRATIVE: CASE EVENT DATE: 201610
